FAERS Safety Report 20311142 (Version 4)
Quarter: 2022Q2

REPORT INFORMATION
  Report Type: Report from Study
  Country: CN (occurrence: CN)
  Receive Date: 20220107
  Receipt Date: 20220610
  Transmission Date: 20220720
  Serious: Yes (Hospitalization)
  Sender: FDA-Public Use
  Company Number: CN-JNJFOC-20211263569

PATIENT
  Age: 52 Year
  Sex: Female
  Weight: 61.5 kg

DRUGS (6)
  1. AMIVANTAMAB [Suspect]
     Active Substance: AMIVANTAMAB
     Indication: Non-small cell lung cancer
     Dosage: CX1D15 COMPLETED ON 28-DEC-2021
     Route: 042
  2. CARBOPLATIN [Suspect]
     Active Substance: CARBOPLATIN
     Indication: Non-small cell lung cancer
     Route: 065
  3. PEMETREXED [Suspect]
     Active Substance: PEMETREXED
     Indication: Non-small cell lung cancer
     Route: 065
  4. BICYCLOL [Concomitant]
     Active Substance: BICYCLOL
     Indication: Alanine aminotransferase increased
     Route: 048
     Dates: start: 20210728
  5. BICYCLOL [Concomitant]
     Active Substance: BICYCLOL
     Indication: Aspartate aminotransferase increased
  6. COMPOUND POLYMYXIN B [Concomitant]
     Indication: Rash
     Dosage: 1 FINGERTIP
     Route: 061
     Dates: start: 20211229

REACTIONS (1)
  - Pleural effusion [Not Recovered/Not Resolved]

NARRATIVE: CASE EVENT DATE: 20211228
